FAERS Safety Report 9283422 (Version 1)
Quarter: 2013Q2

REPORT INFORMATION
  Report Type: Spontaneous
  Country: US (occurrence: US)
  Receive Date: 20130510
  Receipt Date: 20130510
  Transmission Date: 20140414
  Serious: No
  Sender: FDA-Public Use
  Company Number: US-GLAXOSMITHKLINE-A1007208A

PATIENT
  Age: 73 Year
  Sex: Female

DRUGS (5)
  1. TYKERB [Suspect]
     Indication: BREAST CANCER
     Dosage: 1250MG PER DAY
     Route: 048
     Dates: start: 20120720, end: 20121109
  2. BYSTOLIC [Concomitant]
  3. VENLAFAXINE [Concomitant]
  4. DIOVAN [Concomitant]
  5. METFORMIN [Concomitant]

REACTIONS (1)
  - Drug ineffective [Unknown]
